FAERS Safety Report 22945217 (Version 3)
Quarter: 2023Q4

REPORT INFORMATION
  Report Type: Report from Study
  Country: US (occurrence: US)
  Receive Date: 20230914
  Receipt Date: 20231205
  Transmission Date: 20240110
  Serious: Yes (Hospitalization)
  Sender: FDA-Public Use
  Company Number: US-ABBVIE-5406214

PATIENT
  Sex: Male

DRUGS (14)
  1. VENCLEXTA [Suspect]
     Active Substance: VENETOCLAX
     Indication: Acute myeloid leukaemia
     Dosage: LAST ADMIN DATE -2023
     Route: 048
     Dates: start: 20230711
  2. LOSARTAN POTASSIUM [Concomitant]
     Active Substance: LOSARTAN POTASSIUM
     Indication: Product used for unknown indication
     Dosage: ORAL TABLET 100 MG
     Route: 048
  3. VORICONAZOLE [Concomitant]
     Active Substance: VORICONAZOLE
     Indication: Product used for unknown indication
     Dosage: ORAL TABLET 200 MG
     Route: 048
  4. IMODIUM [Concomitant]
     Active Substance: LOPERAMIDE HYDROCHLORIDE
     Indication: Product used for unknown indication
     Dosage: A-D ORAL TABLET 2 MG
     Route: 048
  5. ACYCLOVIR [Concomitant]
     Active Substance: ACYCLOVIR
     Indication: Product used for unknown indication
     Dosage: ORAL TABLET 400 MG
     Route: 048
  6. ONDANSETRON [Concomitant]
     Active Substance: ONDANSETRON
     Indication: Product used for unknown indication
     Dosage: ORAL TABLET 8 MG
     Route: 048
  7. LOPERAMIDE HYDROCHLORIDE [Concomitant]
     Active Substance: LOPERAMIDE HYDROCHLORIDE
     Indication: Product used for unknown indication
     Dosage: HM ORAL CAPSULE 2 MG
  8. FAMOTIDINE [Concomitant]
     Active Substance: FAMOTIDINE
     Indication: Product used for unknown indication
     Dosage: ORAL TABLET 20 MG
     Route: 048
  9. NORCO [Concomitant]
     Active Substance: ACETAMINOPHEN\HYDROCODONE BITARTRATE
     Indication: Product used for unknown indication
     Dosage: ORAL TABLET 5-325 MG
     Route: 048
  10. LEVAQUIN [Concomitant]
     Active Substance: LEVOFLOXACIN
     Indication: Product used for unknown indication
     Dosage: ORAL TABLET 500 MG
     Route: 048
  11. SEMGLEE [Concomitant]
     Indication: Product used for unknown indication
     Dosage: (YFGN) SUBCUTANEOUS SOLUTION
     Route: 058
  12. DECITABINE [Concomitant]
     Active Substance: DECITABINE
     Indication: Product used for unknown indication
     Dosage: INTRAVENOUS SOLUTION 50 MG
  13. DEXILANT [Concomitant]
     Active Substance: DEXLANSOPRAZOLE
     Indication: Product used for unknown indication
     Dosage: ORAL CAPSULE DELAYED RELEASE 30 MG
     Route: 048
  14. CARVEDILOL [Concomitant]
     Active Substance: CARVEDILOL
     Indication: Product used for unknown indication
     Dosage: ORAL TABLET 12.5 MG
     Route: 048

REACTIONS (6)
  - Hospitalisation [Not Recovered/Not Resolved]
  - Infection [Unknown]
  - Ulcer [Unknown]
  - Pyrexia [Unknown]
  - Diarrhoea [Unknown]
  - Liver disorder [Unknown]

NARRATIVE: CASE EVENT DATE: 20230101
